FAERS Safety Report 10355028 (Version 1)
Quarter: 2014Q3

REPORT INFORMATION
  Report Type: Spontaneous
  Country: US (occurrence: None)
  Receive Date: 20140729
  Receipt Date: 20140729
  Transmission Date: 20150326
  Serious: Yes (Other)
  Sender: FDA-Public Use
  Company Number: None

PATIENT
  Age: 57 Year
  Sex: Male

DRUGS (1)
  1. OPTIRAY 350 [Suspect]
     Active Substance: IOVERSOL

REACTIONS (13)
  - Feeling abnormal [None]
  - Paraesthesia [None]
  - Malaise [None]
  - Muscle twitching [None]
  - Liver disorder [None]
  - Urinary tract infection [None]
  - Visual impairment [None]
  - Balance disorder [None]
  - General physical health deterioration [None]
  - Burning sensation [None]
  - Renal pain [None]
  - Skin disorder [None]
  - Nausea [None]

NARRATIVE: CASE EVENT DATE: 20140117
